FAERS Safety Report 13276553 (Version 2)
Quarter: 2017Q2

REPORT INFORMATION
  Report Type: Spontaneous
  Country: US (occurrence: US)
  Receive Date: 20170228
  Receipt Date: 20170502
  Transmission Date: 20170830
  Serious: Yes (Other)
  Sender: FDA-Public Use
  Company Number: US-TEVA-744704USA

PATIENT

DRUGS (1)
  1. PROAIR HFA [Suspect]
     Active Substance: ALBUTEROL SULFATE

REACTIONS (9)
  - Tremor [Unknown]
  - Dizziness [Unknown]
  - Aphasia [Unknown]
  - Incorrect dose administered [Unknown]
  - Heart rate abnormal [Unknown]
  - Headache [Unknown]
  - Hypertension [Unknown]
  - Flushing [Unknown]
  - Hypoaesthesia [Unknown]
